FAERS Safety Report 20965516 (Version 3)
Quarter: 2022Q3

REPORT INFORMATION
  Report Type: Spontaneous
  Country: US (occurrence: US)
  Receive Date: 20220616
  Receipt Date: 20220920
  Transmission Date: 20221026
  Serious: Yes (Hospitalization, Other)
  Sender: FDA-Public Use
  Company Number: US-BRISTOL-MYERS SQUIBB COMPANY-2022-054098

PATIENT
  Age: 70 Year
  Sex: Male
  Weight: 113.39 kg

DRUGS (3)
  1. REVLIMID [Suspect]
     Active Substance: LENALIDOMIDE
     Indication: Plasma cell myeloma
     Dosage: DAY 1-14 Q 21 DAYS
     Route: 048
     Dates: start: 20211224
  2. REVLIMID [Suspect]
     Active Substance: LENALIDOMIDE
     Dosage: DAYS 1-14 Q 21 DAYS
     Route: 048
     Dates: start: 20220805, end: 20220819
  3. REVLIMID [Suspect]
     Active Substance: LENALIDOMIDE
     Dosage: 14 DAYS ON AND SEVEN DAYS BREAK
     Route: 065

REACTIONS (5)
  - Pulmonary embolism [Recovering/Resolving]
  - Diarrhoea [Recovered/Resolved]
  - Off label use [Unknown]
  - Fatigue [Unknown]
  - Taste disorder [Unknown]
